FAERS Safety Report 5150229-2 (Version None)
Quarter: 2006Q4

REPORT INFORMATION
  Report Type: 
  Country: None (occurrence: None)
  Receive Date: 20061114
  Receipt Date: 20040831
  Transmission Date: 20070319
  Serious: Yes (Other)
  Sender: FDA-Public Use
  Company Number: US-BAYER-200420429BWH

PATIENT
  Age: 60 Year
  Sex: Male

DRUGS (14)
  1. NIFEDIPINE (MANUFACTURE UNKNOWN) [Suspect]
     Indication: HYPERTENSION
     Dosage: TOTAL DAILY DOSE: 60 MG  UNIT DOSE: 60 MG
     Route: 048
     Dates: start: 20030101
  2. NIFEDIPINE (MANUFACTURE UNKNOWN) [Interacting]
     Dosage: AS USED: 30 MG  UNIT DOSE: 30 MG
     Route: 048
  3. VIAGRA [Interacting]
     Indication: ERECTILE DYSFUNCTION
     Dosage: TOTAL DAILY DOSE: 100 MG
     Dates: start: 20010101, end: 20040101
  4. VIAGRA [Interacting]
     Dosage: TOTAL DAILY DOSE: 200 MG
  5. ATENOLOL [Concomitant]
     Indication: HYPERTENSION
     Dosage: TOTAL DAILY DOSE: 50 MG
     Dates: start: 20030101
  6. LISINOPRIL [Concomitant]
     Indication: HYPERTENSION
     Dosage: TOTAL DAILY DOSE: 20 MG
     Route: 048
     Dates: start: 20030101
  7. METOPROLOL TARTRATE [Concomitant]
     Route: 048
  8. HYDRALAZINE HCL [Concomitant]
  9. LEVITRA [Concomitant]
  10. CIALIS [Concomitant]
  11. TRIAMTERENE AND HYDROCHLOROTHIAZIDE [Concomitant]
  12. ANTIHYPERTENSIVES [Concomitant]
     Indication: BLOOD PRESSURE MANAGEMENT
  13. ZOCOR [Concomitant]
  14. DYAZIDE [Concomitant]

REACTIONS (4)
  - DRUG INEFFECTIVE [None]
  - DRUG INTERACTION [None]
  - ERECTILE DYSFUNCTION [None]
  - HYPERTENSION [None]
